FAERS Safety Report 5162689-1 (Version None)
Quarter: 2006Q4

REPORT INFORMATION
  Report Type: 
  Country: None (occurrence: None)
  Receive Date: 20061201
  Receipt Date: 20060410
  Transmission Date: 20070319
  Serious: No
  Sender: FDA-Public Use
  Company Number: US-GLAXOSMITHKLINE-A0601866A

PATIENT
  Sex: Female
  Weight: 102.7 kg

DRUGS (4)
  1. AUGMENTIN '125' [Suspect]
     Indication: NEURALGIA
     Dosage: 500MG TWICE PER DAY
     Route: 048
  2. NEURONTIN [Concomitant]
     Indication: NEURALGIA
  3. INDOCIN [Concomitant]
     Indication: NEURALGIA
  4. NERVE BLOCKS [Concomitant]
     Indication: NEURALGIA

REACTIONS (1)
  - THERAPEUTIC RESPONSE UNEXPECTED [None]
